FAERS Safety Report 26218440 (Version 1)
Quarter: 2025Q4

REPORT INFORMATION
  Report Type: Spontaneous
  Country: EU (occurrence: None)
  Receive Date: 20251231
  Receipt Date: 20251231
  Transmission Date: 20260118
  Serious: Yes (Congenital Anomaly, Other)
  Sender: UCB
  Company Number: None

PATIENT
  Age: 23 Year

DRUGS (5)
  1. KEPPRA [Suspect]
     Active Substance: LEVETIRACETAM
     Indication: Epilepsy
     Route: 061
  2. BRINTELLIX [Suspect]
     Active Substance: VORTIOXETINE HYDROBROMIDE
     Indication: Epilepsy
     Route: 061
  3. CENOBAMATE [Suspect]
     Active Substance: CENOBAMATE
     Indication: Epilepsy
     Route: 061
  4. ZONISAMIDE [Suspect]
     Active Substance: ZONISAMIDE
     Indication: Epilepsy
     Route: 061
  5. VALPROATE SODIUM [Suspect]
     Active Substance: VALPROATE SODIUM
     Indication: Epilepsy
     Route: 061

REACTIONS (3)
  - Preterm premature rupture of membranes [Recovered/Resolved with Sequelae]
  - Abortion induced [Recovered/Resolved with Sequelae]
  - Maternal exposure during pregnancy [Unknown]
